FAERS Safety Report 25402288 (Version 1)
Quarter: 2025Q2

REPORT INFORMATION
  Report Type: Spontaneous
  Country: US (occurrence: None)
  Receive Date: 20250605
  Receipt Date: 20250605
  Transmission Date: 20250716
  Serious: Yes (Other)
  Sender: FDA-CTU
  Company Number: None

PATIENT
  Age: 16 Year
  Sex: Female
  Weight: 62 kg

DRUGS (4)
  1. FLUOXETINE [Suspect]
     Active Substance: FLUOXETINE HYDROCHLORIDE
     Indication: Off label use
     Dosage: FREQUENCY : DAILY;?
     Route: 048
  2. Dextroamphetamine -amphetamine 20 mg [Concomitant]
  3. Prazosin 7 mg [Concomitant]
  4. ZIPRASIDONE [Concomitant]
     Active Substance: ZIPRASIDONE

REACTIONS (4)
  - Energy increased [None]
  - Sleep disorder [None]
  - Agitation [None]
  - Affective disorder [None]

NARRATIVE: CASE EVENT DATE: 20250418
